FAERS Safety Report 23527071 (Version 1)
Quarter: 2024Q1

REPORT INFORMATION
  Report Type: Spontaneous
  Country: US (occurrence: US)
  Receive Date: 20240215
  Receipt Date: 20240215
  Transmission Date: 20240410
  Serious: Yes (Hospitalization)
  Sender: FDA-Public Use
  Company Number: US-AMNEAL PHARMACEUTICALS-2024-AMRX-00415

PATIENT
  Sex: Male

DRUGS (2)
  1. RYTARY [Suspect]
     Active Substance: CARBIDOPA\LEVODOPA
     Indication: Product used for unknown indication
     Dosage: 61.25-245 MG/ 36.25-145 MG (1 CAPSULE TWICE DAILY/1 CAPSULE AFTER LUNCH)
     Route: 048
  2. RYTARY [Suspect]
     Active Substance: CARBIDOPA\LEVODOPA
     Dosage: 1 CAPSULES (61.25-245 MG), 3 /DAY
     Route: 048

REACTIONS (4)
  - Cellulitis [Unknown]
  - COVID-19 [Unknown]
  - Infection [Unknown]
  - Urinary tract infection [Unknown]
